FAERS Safety Report 6634242-1 (Version None)
Quarter: 2010Q1

REPORT INFORMATION
  Report Type: 
  Country: None (occurrence: None)
  Receive Date: 20100315
  Receipt Date: 20100311
  Transmission Date: 20100710
  Serious: Yes (Life-Threatening, Other)
  Sender: FDA-Public Use
  Company Number: BE-ASTRAZENECA-2010SE09889

PATIENT
  Age: 84 Year
  Sex: Female
  Weight: 78 kg

DRUGS (3)
  1. NAROPIN [Suspect]
     Indication: POSTOPERATIVE ANALGESIA
     Dosage: 4 ML/H
     Route: 008
     Dates: start: 20100304, end: 20100305
  2. SUFENTA [Concomitant]
     Indication: POSTOPERATIVE ANALGESIA
     Dosage: 1 UG/ML, 4 ML/H
     Route: 008
     Dates: start: 20100304, end: 20100305
  3. ANTIHYPERTENSIVA [Concomitant]

REACTIONS (3)
  - CIRCULATORY COLLAPSE [None]
  - DRUG TOXICITY [None]
  - EPILEPSY [None]
